FAERS Safety Report 21592334 (Version 2)
Quarter: 2022Q4

REPORT INFORMATION
  Report Type: Spontaneous
  Country: BR (occurrence: BR)
  Receive Date: 20221114
  Receipt Date: 20221206
  Transmission Date: 20230113
  Serious: Yes (Other)
  Sender: FDA-Public Use
  Company Number: BR-BIOMARINAP-BR-2021-137688

PATIENT

DRUGS (4)
  1. NAGLAZYME [Suspect]
     Active Substance: GALSULFASE
     Indication: Mucopolysaccharidosis VI
     Dosage: UNK, QW
     Route: 042
  2. ALDACTONE [Concomitant]
     Active Substance: SPIRONOLACTONE
     Indication: Mitral valve disease
     Dosage: 50 MILLIGRAM, QD
  3. CAPTOPRIL [Concomitant]
     Active Substance: CAPTOPRIL
     Indication: Mitral valve disease
     Dosage: 12.5 MILLIGRAM, BID
  4. FUROSEMIDE [Concomitant]
     Active Substance: FUROSEMIDE
     Indication: Mitral valve disease
     Dosage: 40 MILLIGRAM, QD

REACTIONS (11)
  - Pulmonary hypertension [Not Recovered/Not Resolved]
  - Restrictive pulmonary disease [Unknown]
  - Bronchial wall thickening [Unknown]
  - Mitral valve incompetence [Unknown]
  - Cardiomegaly [Unknown]
  - Aortic valve incompetence [Unknown]
  - Wheezing [Unknown]
  - Obstructive airways disorder [Not Recovered/Not Resolved]
  - Vasodilatation [Unknown]
  - Dyspnoea [Recovering/Resolving]
  - Sleep apnoea syndrome [Unknown]
